FAERS Safety Report 6804997-1 (Version None)
Quarter: 2010Q2

REPORT INFORMATION
  Report Type: 
  Country: None (occurrence: None)
  Receive Date: 20100628
  Receipt Date: 20070806
  Transmission Date: 20101027
  Serious: No
  Sender: FDA-Public Use
  Company Number: US-PFIZER INC-2007065109

PATIENT
  Age: 60 Year
  Sex: Male
  Weight: 98 kg

DRUGS (7)
  1. SUTENT [Suspect]
     Indication: RENAL CANCER
     Dates: start: 20070728
  2. MORPHINE [Concomitant]
  3. OXYCODONE HCL [Concomitant]
  4. CITALOPRAM [Concomitant]
  5. LORAZEPAM [Concomitant]
  6. STOOL SOFTENER [Concomitant]
  7. COMPAZINE [Concomitant]

REACTIONS (1)
  - METASTASES TO CENTRAL NERVOUS SYSTEM [None]
